FAERS Safety Report 17951710 (Version 2)
Quarter: 2020Q3

REPORT INFORMATION
  Report Type: Report from Study
  Country: NL (occurrence: NL)
  Receive Date: 20200626
  Receipt Date: 20200702
  Transmission Date: 20201103
  Serious: Yes (Hospitalization)
  Sender: FDA-Public Use
  Company Number: NL-ROCHE-2631531

PATIENT
  Age: 28 Year
  Sex: Female

DRUGS (6)
  1. RIVAROXABAN [Concomitant]
     Active Substance: RIVAROXABAN
     Dosage: 4 X 500 MG
     Route: 065
     Dates: start: 20200602
  2. VARENICLINE [Concomitant]
     Active Substance: VARENICLINE
     Route: 065
     Dates: start: 20200602, end: 20200602
  3. CARBOPLATIN. [Suspect]
     Active Substance: CARBOPLATIN
     Indication: HER2 POSITIVE BREAST CANCER
     Dosage: DATE OF MOST RECENT ADMINISTRATION: 29/OCT/2019?900 AUC
     Route: 042
     Dates: start: 20190705
  4. PERTUZUMAB. [Suspect]
     Active Substance: PERTUZUMAB
     Indication: HER2 POSITIVE BREAST CANCER
     Dosage: DATE OF MOST CURRENT ADMINISTRATION: 05/JUN/2020
     Route: 065
     Dates: start: 20190705
  5. PACLITAXEL. [Suspect]
     Active Substance: PACLITAXEL
     Indication: HER2 POSITIVE BREAST CANCER
     Dosage: DATE OF MOST RECENT ADMINISTRATION: 01/NOV/2019
     Route: 042
     Dates: start: 20190705
  6. TRASTUZUMAB. [Suspect]
     Active Substance: TRASTUZUMAB
     Indication: HER2 POSITIVE BREAST CANCER
     Dosage: MOST CURRENT ADMINISTRATION DATE: 05/JUN/2020
     Route: 065
     Dates: start: 20190705

REACTIONS (1)
  - Erysipelas [Not Recovered/Not Resolved]

NARRATIVE: CASE EVENT DATE: 20200608
